FAERS Safety Report 19368973 (Version 1)
Quarter: 2021Q2

REPORT INFORMATION
  Report Type: Spontaneous
  Country: US (occurrence: US)
  Receive Date: 20210602
  Receipt Date: 20210602
  Transmission Date: 20210717
  Serious: No
  Sender: FDA-Public Use
  Company Number: US-ROCHE-2679577

PATIENT
  Age: 27 Year
  Sex: Female

DRUGS (2)
  1. BENADRYL [Concomitant]
     Active Substance: DIPHENHYDRAMINE HYDROCHLORIDE
  2. OCREVUS [Suspect]
     Active Substance: OCRELIZUMAB
     Indication: PRODUCT USED FOR UNKNOWN INDICATION
     Route: 065

REACTIONS (7)
  - Paraesthesia [Unknown]
  - Limb discomfort [Unknown]
  - Fatigue [Unknown]
  - Ear pruritus [Unknown]
  - Hypoaesthesia [Unknown]
  - Back pain [Unknown]
  - Palpitations [Unknown]
